FAERS Safety Report 7228478-9 (Version None)
Quarter: 2011Q1

REPORT INFORMATION
  Report Type: 
  Country: None (occurrence: None)
  Receive Date: 20110114
  Receipt Date: 20110107
  Transmission Date: 20110831
  Serious: Yes (Hospitalization)
  Sender: FDA-Public Use
  Company Number: US-US-EMD SERONO, INC.-7035262

PATIENT
  Sex: Male

DRUGS (5)
  1. COUMADIN [Concomitant]
     Dates: end: 20100101
  2. UNSPECIFIED MEDICATIONS [Concomitant]
  3. COUMADIN [Concomitant]
     Dates: start: 20100101
  4. REBIF [Suspect]
     Indication: MULTIPLE SCLEROSIS
     Route: 058
     Dates: start: 20101215, end: 20110105
  5. REBIF [Suspect]
     Route: 058
     Dates: start: 20110103, end: 20110105

REACTIONS (1)
  - THROMBOSIS [None]
